FAERS Safety Report 6437097-3 (Version None)
Quarter: 2009Q4

REPORT INFORMATION
  Report Type: 
  Country: None (occurrence: None)
  Receive Date: 20091112
  Receipt Date: 20091105
  Transmission Date: 20100525
  Serious: Yes (Hospitalization, Other)
  Sender: FDA-Public Use
  Company Number: PHEH2009US14287

PATIENT
  Sex: Female
  Weight: 101.4 kg

DRUGS (8)
  1. ZOLEDRONATE T29581+SOLINF [Suspect]
     Indication: BREAST CANCER
     Dosage: 4MG EVERY 15MINS
     Route: 042
     Dates: start: 20090728, end: 20090922
  2. CALTRATE [Concomitant]
  3. VITAMIN D [Concomitant]
  4. DARVOCET-N 100 [Concomitant]
  5. FAMOTIDINE [Concomitant]
  6. SENOKOT [Concomitant]
  7. SUDAFED 12 HOUR [Concomitant]
  8. TAMOXIFEN CITRATE [Concomitant]

REACTIONS (4)
  - DEMYELINATING POLYNEUROPATHY [None]
  - GUILLAIN-BARRE SYNDROME [None]
  - MUSCULAR WEAKNESS [None]
  - PAIN [None]
